FAERS Safety Report 11898896 (Version 2)
Quarter: 2016Q1

REPORT INFORMATION
  Report Type: Spontaneous
  Country: FR (occurrence: FR)
  Receive Date: 20160108
  Receipt Date: 20160115
  Transmission Date: 20160526
  Serious: Yes (Death)
  Sender: FDA-Public Use
  Company Number: FR-JNJFOC-20160101543

PATIENT
  Age: 72 Year
  Sex: Female

DRUGS (17)
  1. NOCTAMIDE [Suspect]
     Active Substance: LORMETAZEPAM
     Indication: PRODUCT USED FOR UNKNOWN INDICATION
     Route: 048
     Dates: start: 20150414, end: 20150714
  2. NORMACOL [Concomitant]
     Active Substance: KARAYA GUM
     Route: 054
     Dates: end: 20150714
  3. GLUCOSE BAXTER [Concomitant]
     Active Substance: DEXTROSE
     Route: 065
     Dates: start: 20150709, end: 20150714
  4. MACROGOL 3350 [Concomitant]
     Active Substance: POLYETHYLENE GLYCOL 3350
     Route: 048
     Dates: start: 20150709, end: 20150714
  5. ANAFRANIL [Concomitant]
     Active Substance: CLOMIPRAMINE HYDROCHLORIDE
     Route: 048
     Dates: start: 20150223, end: 20150714
  6. FLUINDIONE [Concomitant]
     Active Substance: FLUINDIONE
     Dosage: 20 MG 0.75 TABLETS PER DAY
     Route: 065
     Dates: start: 20150223, end: 20150714
  7. VALIUM [Suspect]
     Active Substance: DIAZEPAM
     Indication: AGITATION
     Route: 048
     Dates: start: 20150713, end: 20150714
  8. KETODERM [Concomitant]
     Active Substance: KETOCONAZOLE
     Route: 065
     Dates: start: 20150318, end: 20150714
  9. RISPERDAL [Suspect]
     Active Substance: RISPERIDONE
     Indication: MENTAL DISORDER
     Route: 048
     Dates: start: 20150616, end: 20150714
  10. MACROGOL 3350 [Concomitant]
     Active Substance: POLYETHYLENE GLYCOL 3350
     Route: 048
     Dates: start: 20150324
  11. LORAZEPAM. [Suspect]
     Active Substance: LORAZEPAM
     Indication: PRODUCT USED FOR UNKNOWN INDICATION
     Route: 048
     Dates: start: 20150227, end: 20150710
  12. SERESTA [Suspect]
     Active Substance: OXAZEPAM
     Indication: PRODUCT USED FOR UNKNOWN INDICATION
     Dosage: 50 MG 0.5 TABLET PER DAY
     Route: 048
     Dates: start: 20150515, end: 20150714
  13. KARDEGIC [Concomitant]
     Active Substance: ASPIRIN LYSINE
     Route: 048
     Dates: start: 20150123, end: 20150714
  14. RISPERDAL [Suspect]
     Active Substance: RISPERIDONE
     Indication: MENTAL DISORDER
     Route: 048
     Dates: start: 20150518
  15. XENAZINE [Suspect]
     Active Substance: TETRABENAZINE
     Indication: HALLUCINATION
     Route: 048
     Dates: start: 20150311, end: 20150714
  16. VALIUM [Suspect]
     Active Substance: DIAZEPAM
     Indication: AGITATION
     Route: 048
     Dates: start: 20150710
  17. CORDARONE [Concomitant]
     Active Substance: AMIODARONE HYDROCHLORIDE
     Route: 048
     Dates: start: 20140223, end: 20150714

REACTIONS (3)
  - Respiratory depression [Fatal]
  - Pneumonia aspiration [Fatal]
  - Dyspnoea [Fatal]

NARRATIVE: CASE EVENT DATE: 20150714
